FAERS Safety Report 21957216 (Version 1)
Quarter: 2023Q1

REPORT INFORMATION
  Report Type: Spontaneous
  Country: HR (occurrence: None)
  Receive Date: 20230206
  Receipt Date: 20230206
  Transmission Date: 20230417
  Serious: Yes (Other)
  Sender: FDA-Public Use
  Company Number: HR-ROCHE-3278956

PATIENT
  Age: 14 Year
  Sex: Male
  Weight: 50 kg

DRUGS (2)
  1. RIVOTRIL [Suspect]
     Active Substance: CLONAZEPAM
     Indication: Suicide attempt
     Dosage: 30 TABLETS, 15 MG IN 1 DAY
     Route: 048
     Dates: start: 20221205, end: 20221205
  2. FEVARIN [Suspect]
     Active Substance: FLUVOXAMINE MALEATE
     Indication: Suicide attempt
     Dosage: 3G IN 1 DAY, 30 TABLETS
     Route: 048
     Dates: start: 20221205, end: 20221205

REACTIONS (4)
  - Loss of consciousness [Unknown]
  - Somnolence [Unknown]
  - Suicide attempt [Unknown]
  - Intentional overdose [Unknown]

NARRATIVE: CASE EVENT DATE: 20221205
